FAERS Safety Report 6258969-9 (Version None)
Quarter: 2009Q3

REPORT INFORMATION
  Report Type: 
  Country: None (occurrence: None)
  Receive Date: 20090707
  Receipt Date: 20090622
  Transmission Date: 20100115
  Serious: Yes (Other)
  Sender: FDA-Public Use
  Company Number: GB-GENENTECH-285982

PATIENT
  Age: 44 Year
  Sex: Female

DRUGS (6)
  1. MABTHERA [Suspect]
     Indication: B-LYMPHOCYTE COUNT DECREASED
     Dosage: 1 G, UNK
     Route: 065
  2. METHYLPREDNISOLONE [Suspect]
     Indication: B-LYMPHOCYTE COUNT DECREASED
     Dosage: 125 MG, UNK
     Route: 065
  3. CYCLOPHOSPHAMIDE [Suspect]
     Indication: B-LYMPHOCYTE COUNT DECREASED
     Dosage: 750 MG, UNK
     Route: 042
  4. AZA [Suspect]
     Indication: MYOPATHY
     Route: 065
  5. METHOTREXATE [Suspect]
     Indication: MYOPATHY
     Route: 065
  6. PREDNISOLONE [Suspect]
     Indication: MYOPATHY
     Route: 065

REACTIONS (3)
  - ASTHENIA [None]
  - BLOOD CREATINE PHOSPHOKINASE INCREASED [None]
  - HERPES ZOSTER [None]
